FAERS Safety Report 8074137-2 (Version None)
Quarter: 2011Q4

REPORT INFORMATION
  Report Type: 
  Country: None (occurrence: None)
  Receive Date: 20111221
  Receipt Date: 20110901
  Transmission Date: 20120403
  Serious: Yes (Hospitalization)
  Sender: FDA-Public Use
  Company Number: PHEH2009US08583

PATIENT
  Age: 63 Year
  Sex: Female

DRUGS (2)
  1. EXJADE [Suspect]
     Indication: IRON OVERLOAD
     Dosage: 1000 MG, DAILY, ORAL ; 1000 MG, 3 TIMES A WEEK, ORAL
     Route: 048
     Dates: start: 20060524
  2. EXJADE [Suspect]
     Indication: SICKLE CELL ANAEMIA
     Dosage: 1000 MG, DAILY, ORAL ; 1000 MG, 3 TIMES A WEEK, ORAL
     Route: 048
     Dates: start: 20060524

REACTIONS (1)
  - DIARRHOEA [None]
